FAERS Safety Report 5837093-0 (Version None)
Quarter: 2008Q3

REPORT INFORMATION
  Report Type: 
  Country: None (occurrence: None)
  Receive Date: 20080807
  Receipt Date: 20080305
  Transmission Date: 20090109
  Serious: No
  Sender: FDA-Public Use
  Company Number: A0713485A

PATIENT
  Age: 65 Year
  Sex: Female

DRUGS (1)
  1. TAGAMET HB 200 [Suspect]
     Indication: ROUTINE HEALTH MAINTENANCE

REACTIONS (2)
  - ALOPECIA [None]
  - INTENTIONAL DRUG MISUSE [None]
